FAERS Safety Report 19168318 (Version 1)
Quarter: 2021Q2

REPORT INFORMATION
  Report Type: Spontaneous
  Country: US (occurrence: US)
  Receive Date: 20210421
  Receipt Date: 20210421
  Transmission Date: 20210717
  Serious: Yes (Other)
  Sender: FDA-Public Use
  Company Number: None

PATIENT
  Age: 21 Year
  Sex: Female
  Weight: 90 kg

DRUGS (18)
  1. DESVENLAFAXINE. [Concomitant]
     Active Substance: DESVENLAFAXINE
  2. SOLIRIS [Suspect]
     Active Substance: ECULIZUMAB
     Indication: MYASTHENIA GRAVIS
     Dates: start: 20210315, end: 20210412
  3. BIOTIN [Concomitant]
     Active Substance: BIOTIN
  4. AMITRIPTYLINE [Concomitant]
     Active Substance: AMITRIPTYLINE
  5. MECLIZINE [Concomitant]
     Active Substance: MECLIZINE HYDROCHLORIDE
  6. BUTALBITAL [Concomitant]
     Active Substance: BUTALBITAL
  7. GABAPENTIN. [Concomitant]
     Active Substance: GABAPENTIN
  8. CLARITIN [Concomitant]
     Active Substance: LORATADINE
  9. MESTINON [Concomitant]
     Active Substance: PYRIDOSTIGMINE BROMIDE
  10. SALT STICKS [Concomitant]
  11. VITAMIN D [Concomitant]
     Active Substance: VITAMIN D NOS
  12. DIAZEPAM. [Concomitant]
     Active Substance: DIAZEPAM
  13. NORETHINDRONE. [Concomitant]
     Active Substance: NORETHINDRONE
  14. OMEPRAZOLE. [Concomitant]
     Active Substance: OMEPRAZOLE
  15. ONDANSETRON [Concomitant]
     Active Substance: ONDANSETRON
  16. PROPRANOLOL [Concomitant]
     Active Substance: PROPRANOLOL HYDROCHLORIDE
  17. PREDNISONE. [Concomitant]
     Active Substance: PREDNISONE
  18. HYDROCODONE [Concomitant]
     Active Substance: HYDROCODONE

REACTIONS (4)
  - Dizziness [None]
  - Bedridden [None]
  - Back pain [None]
  - Headache [None]

NARRATIVE: CASE EVENT DATE: 20210315
